FAERS Safety Report 8049688-7 (Version None)
Quarter: 2012Q1

REPORT INFORMATION
  Report Type: 
  Country: None (occurrence: None)
  Receive Date: 20120117
  Receipt Date: 20120113
  Transmission Date: 20120608
  Serious: Yes (Other)
  Sender: FDA-Public Use
  Company Number: US-GLAXOSMITHKLINE-A0952337A

PATIENT

DRUGS (3)
  1. ZYRTEC [Suspect]
     Route: 065
  2. ADVAIR DISKUS 100/50 [Suspect]
     Indication: PRODUCT USED FOR UNKNOWN INDICATION
     Route: 055
  3. ANTIHISTAMINES [Suspect]
     Route: 065

REACTIONS (1)
  - HALLUCINATION [None]
